FAERS Safety Report 16789840 (Version 1)
Quarter: 2019Q3

REPORT INFORMATION
  Report Type: Spontaneous
  Country: US (occurrence: US)
  Receive Date: 20190910
  Receipt Date: 20190910
  Transmission Date: 20191005
  Serious: Yes (Other)
  Sender: FDA-Public Use
  Company Number: US-ASTRAZENECA-2019SF27177

PATIENT
  Age: 59 Year
  Sex: Male

DRUGS (7)
  1. BRILINTA [Suspect]
     Active Substance: TICAGRELOR
     Indication: MYOCARDIAL INFARCTION
     Dosage: UNKNOWN
     Route: 048
     Dates: start: 201809
  2. BRILINTA [Suspect]
     Active Substance: TICAGRELOR
     Indication: CHEST PAIN
     Dosage: UNKNOWN
     Route: 048
     Dates: start: 2019
  3. PLAVIX [Concomitant]
     Active Substance: CLOPIDOGREL BISULFATE
  4. BRILINTA [Suspect]
     Active Substance: TICAGRELOR
     Indication: MYOCARDIAL INFARCTION
     Dosage: UNKNOWN
     Route: 048
     Dates: start: 2019
  5. BRILINTA [Suspect]
     Active Substance: TICAGRELOR
     Indication: TROPONIN INCREASED
     Dosage: UNKNOWN
     Route: 048
     Dates: start: 2019
  6. BRILINTA [Suspect]
     Active Substance: TICAGRELOR
     Indication: CHEST PAIN
     Dosage: UNKNOWN
     Route: 048
     Dates: start: 201809
  7. BRILINTA [Suspect]
     Active Substance: TICAGRELOR
     Indication: TROPONIN INCREASED
     Dosage: UNKNOWN
     Route: 048
     Dates: start: 201809

REACTIONS (4)
  - Troponin increased [Unknown]
  - Coronary artery occlusion [Unknown]
  - Dyspnoea [Recovered/Resolved]
  - Chest pain [Unknown]
